FAERS Safety Report 8735508 (Version 4)
Quarter: 2012Q4

REPORT INFORMATION
  Report Type: 
  Country: JP (occurrence: JP)
  Receive Date: 20120822
  Receipt Date: 20121231
  Transmission Date: 20130627
  Serious: Yes (Hospitalization, Other)
  Sender: FDA-Public Use
  Company Number: PHHY2012JP071928

PATIENT
  Age: 89 Year
  Sex: Female

DRUGS (13)
  1. RIVASTIGMIN [Suspect]
     Indication: DEMENTIA ALZHEIMER^S TYPE
     Dosage: 18 mg, Daily
     Route: 062
  2. RIVASTIGMIN [Suspect]
     Dosage: 13.5 mg, Daily
     Route: 062
     Dates: start: 20120908
  3. PLAVIX [Suspect]
     Indication: HYPERLIPIDAEMIA
     Dosage: 50 mg, QD
     Route: 048
     Dates: end: 20120816
  4. PLAVIX [Suspect]
     Dosage: 50 mg, QD
     Route: 048
     Dates: start: 20120904, end: 20120917
  5. CRESTOR [Suspect]
     Indication: HYPERLIPIDAEMIA
     Dosage: 5 mg, per day
     Route: 048
     Dates: end: 20120831
  6. PLATIBIT [Concomitant]
  7. ARTIST [Concomitant]
  8. NIKORANMART [Concomitant]
  9. LANSOPRAZOLE [Concomitant]
     Dosage: 15 mg, UNK
     Dates: start: 20120920
  10. LANSOPRAZOLE [Concomitant]
     Dosage: 30 mg, UNK
     Dates: start: 20120921
  11. SAWACHION [Concomitant]
     Dosage: 10 mg, UNK
     Dates: start: 20120928, end: 20121028
  12. SAWACHION [Concomitant]
     Dosage: 15 mg, UNK
     Dates: start: 20121029
  13. SENNOSIDE [Concomitant]
     Dates: end: 20121018

REACTIONS (8)
  - Aphagia [Unknown]
  - Decreased appetite [Recovered/Resolved]
  - Ovarian neoplasm [Unknown]
  - Glomerular filtration rate decreased [Unknown]
  - Ulcer haemorrhage [Recovered/Resolved]
  - Haemoglobin decreased [Unknown]
  - Red blood cell count decreased [Unknown]
  - Haematocrit decreased [Unknown]
